FAERS Safety Report 10241292 (Version 2)
Quarter: 2015Q1

REPORT INFORMATION
  Report Type: Spontaneous
  Country: US (occurrence: US)
  Receive Date: 20140617
  Receipt Date: 20150317
  Transmission Date: 20150720
  Serious: No
  Sender: FDA-Public Use
  Company Number: US-PFIZER INC-2014162809

PATIENT
  Age: 81 Year
  Sex: Female

DRUGS (8)
  1. PREDNISOLONE. [Suspect]
     Active Substance: PREDNISOLONE
     Dosage: UNK
  2. ALEVE [Suspect]
     Active Substance: NAPROXEN SODIUM
     Dosage: UNK
  3. LISINOPRIL. [Suspect]
     Active Substance: LISINOPRIL
     Dosage: UNK
  4. OXYBUTYNIN [Suspect]
     Active Substance: OXYBUTYNIN
     Dosage: UNK
  5. PREMARIN [Suspect]
     Active Substance: ESTROGENS, CONJUGATED
     Dosage: UNK
  6. PREDNISONE. [Suspect]
     Active Substance: PREDNISONE
     Dosage: UNK
  7. CORTISONE [Suspect]
     Active Substance: CORTISONE\HYDROCORTISONE
     Dosage: UNK
  8. ACTONEL [Suspect]
     Active Substance: RISEDRONATE SODIUM
     Dosage: UNK

REACTIONS (1)
  - Drug hypersensitivity [Unknown]
